FAERS Safety Report 4654981-1 (Version None)
Quarter: 2005Q2

REPORT INFORMATION
  Report Type: 
  Country: None (occurrence: None)
  Receive Date: 20050504
  Receipt Date: 20050425
  Transmission Date: 20051028
  Serious: Yes (Other)
  Sender: FDA-Public Use
  Company Number: A-CH2005-08652

PATIENT
  Age: 55 Year
  Sex: Female

DRUGS (10)
  1. TRACLEER [Suspect]
     Indication: PULMONARY HYPERTENSION
     Dosage: SEE IMAGE
     Route: 048
     Dates: start: 20041019, end: 20041114
  2. TRACLEER [Suspect]
     Indication: PULMONARY HYPERTENSION
     Dosage: SEE IMAGE
     Route: 048
     Dates: start: 20041115, end: 20050201
  3. TRACLEER [Suspect]
     Indication: PULMONARY HYPERTENSION
     Dosage: SEE IMAGE
     Route: 048
     Dates: start: 20050201, end: 20050328
  4. TRACLEER [Suspect]
     Indication: PULMONARY HYPERTENSION
     Dosage: SEE IMAGE
     Route: 048
     Dates: start: 20050329
  5. FERROUS SULFATE TAB [Concomitant]
  6. EUPANTOL (PANTOPRAZOLE) [Concomitant]
  7. FUROSEMIDE [Concomitant]
  8. ALDACTONE [Concomitant]
  9. MIXTARD (INSULIN INJECTION, ISOPHANE, INSULIN) [Concomitant]
  10. OXYGEN (OXYGEN) [Concomitant]

REACTIONS (7)
  - BLOOD POTASSIUM DECREASED [None]
  - GASTRIC CANCER [None]
  - IRON DEFICIENCY [None]
  - METAPLASIA [None]
  - MICROCYTIC ANAEMIA [None]
  - THROMBOCYTOPENIA [None]
  - VARICES OESOPHAGEAL [None]
